FAERS Safety Report 5100671-0 (Version None)
Quarter: 2006Q3

REPORT INFORMATION
  Report Type: 
  Country: None (occurrence: None)
  Receive Date: 20060906
  Receipt Date: 20060828
  Transmission Date: 20061208
  Serious: Yes (Hospitalization)
  Sender: FDA-Public Use
  Company Number: 147278USA

PATIENT
  Age: 58 Year
  Sex: Male

DRUGS (12)
  1. FLUDARABINE [Suspect]
     Indication: CHRONIC LYMPHOCYTIC LEUKAEMIA TRANSFORMATION
     Dates: start: 20060407, end: 20060408
  2. OXALIPLATIN [Suspect]
     Indication: CHRONIC LYMPHOCYTIC LEUKAEMIA TRANSFORMATION
     Dates: start: 20060406, end: 20060409
  3. RITUXIMAB [Suspect]
     Indication: CHRONIC LYMPHOCYTIC LEUKAEMIA TRANSFORMATION
     Dates: start: 20060406, end: 20060406
  4. CYTARABINE [Suspect]
     Indication: CHRONIC LYMPHOCYTIC LEUKAEMIA TRANSFORMATION
     Dates: start: 20060407, end: 20060408
  5. LEVOFLOXACIN [Concomitant]
  6. SULFAMETHOXAZOLE + TRIMETHOPRIM [Concomitant]
  7. VORICONAZOLE [Concomitant]
  8. VALACYCLOVIR HCL [Concomitant]
  9. HUMULIN 70/30 [Concomitant]
  10. PANTOPRAZOLE SODIUM [Concomitant]
  11. DEXTROPROPOXYPHENE HYDROCHLORIDE [Concomitant]
  12. PROCHLORPERAZINE EDISYLATE [Concomitant]

REACTIONS (4)
  - BLINDNESS UNILATERAL [None]
  - DIABETIC COMPLICATION [None]
  - HYPERTENSION [None]
  - RETINAL HAEMORRHAGE [None]
